FAERS Safety Report 25555533 (Version 2)
Quarter: 2025Q3

REPORT INFORMATION
  Report Type: Spontaneous
  Country: US (occurrence: US)
  Receive Date: 20250715
  Receipt Date: 20250730
  Transmission Date: 20251021
  Serious: Yes (Hospitalization, Disabling, Other)
  Sender: SANDOZ
  Company Number: US-SANDOZ-SDZ2025US048493

PATIENT
  Sex: Female

DRUGS (1)
  1. RECLAST [Suspect]
     Active Substance: ZOLEDRONIC ACID
     Indication: Osteoporosis
     Dosage: 5 ML, Q12MO
     Route: 042
     Dates: start: 20250611

REACTIONS (14)
  - Disability [Unknown]
  - Hyperthyroidism [Unknown]
  - Blood calcium decreased [Unknown]
  - Vitamin D decreased [Unknown]
  - Blood bicarbonate decreased [Unknown]
  - Acute kidney injury [Unknown]
  - Anaemia [Unknown]
  - Nephritis [Unknown]
  - Vitamin C decreased [Unknown]
  - Arthralgia [Unknown]
  - Pain [Unknown]
  - Myalgia [Unknown]
  - Hyperparathyroidism [Unknown]
  - Neck pain [Unknown]

NARRATIVE: CASE EVENT DATE: 20250101
